FAERS Safety Report 9520838 (Version 1)
Quarter: 2013Q3

REPORT INFORMATION
  Report Type: Spontaneous
  Country: GB (occurrence: None)
  Receive Date: 20130911
  Receipt Date: 20130911
  Transmission Date: 20140515
  Serious: Yes (Death, Life-Threatening)
  Sender: FDA-Public Use
  Company Number: SYM-2013-10524

PATIENT
  Age: 55 Year
  Sex: Male
  Weight: 76 kg

DRUGS (10)
  1. FLUCYTOSINE [Suspect]
     Indication: CRYPTOCOCCOSIS
     Dosage: 1.75 GM, 4 IN 1 D, INTRAVENOUS
     Route: 042
     Dates: start: 20130713, end: 20130716
  2. AMLODIPINE (AMLODIPINE) (AMLODIPINE) [Concomitant]
  3. CO-TRIMOXAZOLE (SULFAMETHOXAZOLE) (SULFAMETHOXAZOLE) [Concomitant]
  4. GANCICLOVIR (GANCICLOVIR) (GANCICLOVIR) [Concomitant]
  5. LINEZOLID (LINEZOLID) (LINEZOLID) [Concomitant]
  6. MEROPENEM (MEROPENEM) (MEROPENEM) [Concomitant]
  7. METHYLPREDNISOLONE (METHYLPREDNISOLONE) METHYLPREDNISOLONE) [Concomitant]
  8. MICAFUNGIN (MICAFUNGIN) (MICAFUNGIN) [Concomitant]
  9. PANTOPRAZOLE (PANTOPRAZOLE) (PANTOPRAZOLE) [Concomitant]
  10. TACROLIMUS (TACROLIMUS) (TACROLIMUS) [Concomitant]

REACTIONS (2)
  - Bone marrow failure [None]
  - Neutropenic sepsis [None]
